FAERS Safety Report 9402342 (Version 1)
Quarter: 2013Q3

REPORT INFORMATION
  Report Type: Spontaneous
  Country: US (occurrence: None)
  Receive Date: 20130712
  Receipt Date: 20130712
  Transmission Date: 20140515
  Serious: Yes (Other)
  Sender: FDA-Public Use
  Company Number: None

PATIENT
  Age: 49 Year
  Sex: Female

DRUGS (3)
  1. VICTRELIS [Suspect]
     Indication: HEPATITIS C
     Route: 048
     Dates: start: 201304
  2. PEGASYS [Suspect]
     Dosage: Q WEEK
     Route: 058
     Dates: start: 201303
  3. RIBAVIRIN [Concomitant]

REACTIONS (2)
  - Rash [None]
  - White blood cell count decreased [None]
